FAERS Safety Report 23930713 (Version 1)
Quarter: 2024Q2

REPORT INFORMATION
  Report Type: Spontaneous
  Country: ZA (occurrence: None)
  Receive Date: 20240603
  Receipt Date: 20240603
  Transmission Date: 20240717
  Serious: Yes (Other)
  Sender: FDA-Public Use
  Company Number: 2024A124064

PATIENT
  Age: 55 Year
  Sex: Female

DRUGS (5)
  1. BUDESONIDE\FORMOTEROL [Suspect]
     Active Substance: BUDESONIDE\FORMOTEROL
     Indication: Asthma
     Dosage: 120 UG/INHAL, UNKNOWN UNKNOWN
     Route: 055
  2. MYLAN INDAPAMIDE [Concomitant]
     Indication: Hypertension
     Dosage: 2.5MG UNKNOWN
     Route: 048
  3. ENALAPRIL MALEATE [Concomitant]
     Active Substance: ENALAPRIL MALEATE
     Indication: Hypertension
     Dosage: 10.0MG UNKNOWN
     Route: 048
  4. ALPRAZOLAM [Concomitant]
     Active Substance: ALPRAZOLAM
     Indication: Anxiety
     Dosage: 1.0MG UNKNOWN
     Route: 048
  5. ALENDRONATE SODIUM [Concomitant]
     Active Substance: ALENDRONATE SODIUM
     Indication: Osteoporosis
     Dosage: 70.0MG UNKNOWN
     Route: 048

REACTIONS (1)
  - Concussion [Unknown]
